FAERS Safety Report 8357842-X (Version None)
Quarter: 2012Q2

REPORT INFORMATION
  Report Type: 
  Country: None (occurrence: None)
  Receive Date: 20120514
  Receipt Date: 20120507
  Transmission Date: 20120825
  Serious: Yes (Hospitalization)
  Sender: FDA-Public Use
  Company Number: JM-B.I. PHARMACEUTICALS,INC./RIDGEFIELD-2012-CN-00954CN

PATIENT
  Sex: Female

DRUGS (5)
  1. AMIODARONE HCL [Concomitant]
  2. DIGOXIN [Concomitant]
  3. LASIX [Concomitant]
  4. ALDACTONE [Concomitant]
  5. PRADAXA [Suspect]
     Indication: ATRIAL FIBRILLATION
     Dosage: 300 MG
     Dates: start: 20120201, end: 20120501

REACTIONS (5)
  - CARDIAC FAILURE [None]
  - VOMITING [None]
  - ABDOMINAL DISCOMFORT [None]
  - TACHYCARDIA [None]
  - ARRHYTHMIA [None]
